FAERS Safety Report 17157790 (Version 1)
Quarter: 2019Q4

REPORT INFORMATION
  Report Type: Spontaneous
  Country: US (occurrence: US)
  Receive Date: 20191213
  Receipt Date: 20191213
  Transmission Date: 20200122
  Serious: Yes (Hospitalization)
  Sender: FDA-Public Use
  Company Number: None

PATIENT
  Age: 69 Year
  Sex: Female

DRUGS (9)
  1. XELJANZ [Suspect]
     Active Substance: TOFACITINIB CITRATE
     Indication: PRODUCT USED FOR UNKNOWN INDICATION
     Route: 048
     Dates: start: 20181004
  2. VENLAFAXINE CAP 75 MG ER [Concomitant]
  3. MIRTAZIPINE TAB 30 MG [Concomitant]
  4. PLAQUENIL [Concomitant]
     Active Substance: HYDROXYCHLOROQUINE SULFATE
  5. FUROSEMIDE TAB 20 MG [Concomitant]
  6. AMLODIPINE TAB 10 MG [Concomitant]
  7. ATORVASTATIN TAB 20 MG [Concomitant]
  8. FUROSEMIDE TAB 20 MG [Concomitant]
  9. METOPROLOL TAR TAB 100 MG [Concomitant]

REACTIONS (2)
  - Pneumonia [None]
  - Therapy cessation [None]
